FAERS Safety Report 11387260 (Version 1)
Quarter: 2015Q3

REPORT INFORMATION
  Report Type: Spontaneous
  Country: US (occurrence: US)
  Receive Date: 20150817
  Receipt Date: 20150817
  Transmission Date: 20151125
  Serious: No
  Sender: FDA-Public Use
  Company Number: PHEH2015US011864

PATIENT
  Age: 55 Year
  Sex: Male

DRUGS (2)
  1. FARYDAK [Suspect]
     Active Substance: PANOBINOSTAT
     Dosage: 15 MG, UNK
     Route: 065
  2. FARYDAK [Suspect]
     Active Substance: PANOBINOSTAT
     Indication: PLASMA CELL MYELOMA
     Dosage: 20 MG, QD
     Route: 065

REACTIONS (1)
  - Diarrhoea [Recovering/Resolving]
